FAERS Safety Report 9189658 (Version 2)
Quarter: 2013Q2

REPORT INFORMATION
  Report Type: Spontaneous
  Country: RU (occurrence: RU)
  Receive Date: 20130326
  Receipt Date: 20130408
  Transmission Date: 20140414
  Serious: Yes (Other)
  Sender: FDA-Public Use
  Company Number: RU-BAYER-2013-004845

PATIENT
  Sex: Female

DRUGS (3)
  1. NEXAVAR [Suspect]
     Indication: RENAL CANCER
     Dosage: UNK
     Dates: start: 201109
  2. NEXAVAR [Suspect]
     Indication: RENAL CANCER
     Dosage: UNK
  3. ZOMETA [Concomitant]

REACTIONS (5)
  - Metastases to bone [None]
  - Pancreatitis [None]
  - Diarrhoea [Recovered/Resolved]
  - Abdominal pain upper [Recovered/Resolved]
  - Constipation [None]
